FAERS Safety Report 13294146 (Version 10)
Quarter: 2017Q3

REPORT INFORMATION
  Report Type: Spontaneous
  Country: KR (occurrence: KR)
  Receive Date: 20170303
  Receipt Date: 20170825
  Transmission Date: 20171127
  Serious: Yes (Hospitalization, Other)
  Sender: FDA-Public Use
  Company Number: KR-009507513-1702KOR012217

PATIENT
  Age: 69 Year
  Sex: Male
  Weight: 57.2 kg

DRUGS (65)
  1. EMEND (FOSAPREPITANT DIMEGLUMINE) [Suspect]
     Active Substance: FOSAPREPITANT DIMEGLUMINE
     Dosage: 150 MG, ONCE
     Route: 042
     Dates: start: 20170405, end: 20170405
  2. DEXAMETHASONE. [Suspect]
     Active Substance: DEXAMETHASONE
     Indication: PROPHYLAXIS OF NAUSEA AND VOMITING
     Dosage: 4 MG, BID
     Route: 048
     Dates: start: 20170125, end: 20170127
  3. DEXAMETHASONE. [Suspect]
     Active Substance: DEXAMETHASONE
     Dosage: 4 MG, BID
     Route: 048
     Dates: start: 20170308, end: 20170310
  4. SANCUSO [Concomitant]
     Active Substance: GRANISETRON
     Dosage: CONCENTRATION: 80.2X66.6MM2; 1 EA, QD
     Route: 062
     Dates: start: 20170213, end: 20170219
  5. SANCUSO [Concomitant]
     Active Substance: GRANISETRON
     Dosage: CONCENTRATION: 80.2X66.6MM2; 1 EA, QD
     Route: 062
     Dates: start: 20170515, end: 20170517
  6. MEGACE F [Concomitant]
     Indication: PROPHYLAXIS
     Dosage: 5 ML, QD
     Route: 048
     Dates: start: 20170123, end: 20170306
  7. LASIX [Concomitant]
     Active Substance: FUROSEMIDE
     Dosage: CONCENTRATION: 20MG/2ML;20 MG, ONCE
     Route: 042
     Dates: start: 20170426, end: 20170426
  8. EMEND (FOSAPREPITANT DIMEGLUMINE) [Suspect]
     Active Substance: FOSAPREPITANT DIMEGLUMINE
     Dosage: 150 MG, ONCE
     Route: 042
     Dates: start: 20170307, end: 20170307
  9. DEXAMETHASONE. [Suspect]
     Active Substance: DEXAMETHASONE
     Dosage: 4 MG, BID
     Route: 048
     Dates: start: 20170406, end: 20170408
  10. DEXAMETHASONE. [Suspect]
     Active Substance: DEXAMETHASONE
     Dosage: 4 MG, BID
     Route: 048
     Dates: start: 20170517, end: 20170517
  11. DEXAMETHASONE PHOSPHATE [Suspect]
     Active Substance: DEXAMETHASONE PHOSPHATE
     Dosage: 12 MG, ONCE. STRENGTH: 5MG/ML
     Route: 042
     Dates: start: 20170214, end: 20170214
  12. DEXAMETHASONE PHOSPHATE [Suspect]
     Active Substance: DEXAMETHASONE PHOSPHATE
     Dosage: 12 MG, QD. STRENGTH: 5MG/ML
     Route: 042
     Dates: start: 20170404, end: 20170405
  13. SANCUSO [Concomitant]
     Active Substance: GRANISETRON
     Dosage: CONCENTRATION: 80.2X66.6MM2; 1 EA, QD
     Route: 062
     Dates: start: 20170425, end: 20170501
  14. CENTRUM ADVANTAGE [Concomitant]
     Active Substance: VITAMINS
     Indication: VITAMIN SUPPLEMENTATION
  15. EMEND (FOSAPREPITANT DIMEGLUMINE) [Suspect]
     Active Substance: FOSAPREPITANT DIMEGLUMINE
     Indication: PROPHYLAXIS OF NAUSEA AND VOMITING
     Dosage: 150 MG, ONCE
     Route: 042
     Dates: start: 20170124, end: 20170124
  16. DEXAMETHASONE PHOSPHATE [Suspect]
     Active Substance: DEXAMETHASONE PHOSPHATE
     Dosage: 12MG, ONCE. STRENGTH: 5MG/ML12
     Route: 042
     Dates: start: 20170307, end: 20170307
  17. CURAN [Concomitant]
     Active Substance: RANITIDINE HYDROCHLORIDE
     Indication: PROPHYLAXIS OF NAUSEA AND VOMITING
     Dosage: CONCENTRATION: 50 MG/2ML; 50 MG, ONCE
     Route: 042
     Dates: start: 20170124, end: 20170124
  18. CURAN [Concomitant]
     Active Substance: RANITIDINE HYDROCHLORIDE
     Indication: PROPHYLAXIS
     Dosage: CONCENTRATION: 50 MG/2ML; 50 MG, ONCE
     Route: 042
     Dates: start: 20170214, end: 20170214
  19. CURAN [Concomitant]
     Active Substance: RANITIDINE HYDROCHLORIDE
     Indication: PROPHYLAXIS
     Dosage: 150 MG, BID
     Route: 048
     Dates: start: 20170215, end: 20170217
  20. CURAN [Concomitant]
     Active Substance: RANITIDINE HYDROCHLORIDE
     Dosage: 150 MG, BID
     Route: 048
     Dates: start: 20170517, end: 20170519
  21. LASIX [Concomitant]
     Active Substance: FUROSEMIDE
     Indication: PROPHYLAXIS
     Dosage: CONCENTRATION: 20MG/2ML;20 MG, ONCE
     Route: 042
     Dates: start: 20170124, end: 20170124
  22. LASIX [Concomitant]
     Active Substance: FUROSEMIDE
     Dosage: CONCENTRATION: 20MG/2ML;20 MG, ONCE
     Route: 042
     Dates: start: 20170405, end: 20170405
  23. INCRUSE ELLIPTA [Concomitant]
     Active Substance: UMECLIDINIUM BROMIDE
     Indication: CHRONIC OBSTRUCTIVE PULMONARY DISEASE
     Dosage: 1 PUFF, QD
     Route: 055
     Dates: start: 201611
  24. CENTRUM ADVANTAGE [Concomitant]
     Active Substance: VITAMINS
     Indication: MINERAL SUPPLEMENTATION
     Dosage: 1TABLET, QD
     Route: 048
     Dates: start: 20170123, end: 20170404
  25. DEXAMETHASONE PHOSPHATE [Suspect]
     Active Substance: DEXAMETHASONE PHOSPHATE
     Dosage: 12 MG, ONCE. STRENGTH: 5MG/ML
     Route: 042
     Dates: start: 20170426, end: 20170426
  26. LASTET [Suspect]
     Active Substance: ETOPOSIDE
     Dosage: CONCENTRATION: 100MG/5ML;149 MG, QD; CYCLE 5
     Route: 042
     Dates: start: 20170426, end: 20170428
  27. CISPLAN [Suspect]
     Active Substance: CISPLATIN
     Dosage: CONCENTRATION:50MG/100ML; 105 MG, ONCE; CYCLE 3
     Route: 042
     Dates: start: 20170307, end: 20170307
  28. CISPLAN [Suspect]
     Active Substance: CISPLATIN
     Dosage: CONCENTRATION:50MG/100ML; 105 MG, ONCE; CYCLE 4
     Route: 042
     Dates: start: 20170405, end: 20170405
  29. SANCUSO [Concomitant]
     Active Substance: GRANISETRON
     Indication: PROPHYLAXIS OF NAUSEA AND VOMITING
     Dosage: CONCENTRATION: 80.2X66.6MM2; 1 EA, QD;
     Route: 062
     Dates: start: 20170123, end: 20170129
  30. LASIX [Concomitant]
     Active Substance: FUROSEMIDE
     Dosage: CONCENTRATION: 20MG/2ML;20 MG, ONCE
     Route: 042
     Dates: start: 20170214, end: 20170214
  31. LUTHIONE [Concomitant]
     Dosage: 1800 MG ONCE
     Route: 042
     Dates: start: 20170426, end: 20170426
  32. EMEND (FOSAPREPITANT DIMEGLUMINE) [Suspect]
     Active Substance: FOSAPREPITANT DIMEGLUMINE
     Dosage: 150 MG, ONCE
     Route: 042
     Dates: start: 20170214, end: 20170214
  33. EMEND (FOSAPREPITANT DIMEGLUMINE) [Suspect]
     Active Substance: FOSAPREPITANT DIMEGLUMINE
     Dosage: 150 MG, ONCE
     Route: 042
     Dates: start: 20170516, end: 20170516
  34. DEXAMETHASONE PHOSPHATE [Suspect]
     Active Substance: DEXAMETHASONE PHOSPHATE
     Indication: PROPHYLAXIS OF NAUSEA AND VOMITING
     Dosage: 12 MG, ONCE. STRENGTH: 5MG/ML
     Route: 042
     Dates: start: 20170124, end: 20170124
  35. LASTET [Suspect]
     Active Substance: ETOPOSIDE
     Indication: SMALL CELL LUNG CANCER
     Dosage: CONCENTRATION: 100MG/5ML;161 MG, QD; CYCLE 1
     Route: 042
     Dates: start: 20170124, end: 20170126
  36. CISPLAN [Suspect]
     Active Substance: CISPLATIN
     Dosage: CONCENTRATION:50MG/100ML; 110 MG, ONCE; CYCLE 2
     Route: 042
     Dates: start: 20170214, end: 20170214
  37. CURAN [Concomitant]
     Active Substance: RANITIDINE HYDROCHLORIDE
     Dosage: 150 MG, BID
     Route: 048
     Dates: start: 20170406, end: 20170408
  38. LASIX [Concomitant]
     Active Substance: FUROSEMIDE
     Dosage: CONCENTRATION: 20MG/2ML;20 MG, ONCE
     Route: 042
     Dates: start: 20170307, end: 20170307
  39. EMEND (FOSAPREPITANT DIMEGLUMINE) [Suspect]
     Active Substance: FOSAPREPITANT DIMEGLUMINE
     Dosage: 150 MG, ONCE
     Route: 042
     Dates: start: 20170426, end: 20170426
  40. DEXAMETHASONE. [Suspect]
     Active Substance: DEXAMETHASONE
     Dosage: 4 MG, BID
     Route: 048
     Dates: start: 20170427, end: 20170429
  41. DEXAMETHASONE PHOSPHATE [Suspect]
     Active Substance: DEXAMETHASONE PHOSPHATE
     Dosage: 12 MG, ONCE. STRENGTH: 5MG/ML
     Route: 042
     Dates: start: 20170516, end: 20170516
  42. LASTET [Suspect]
     Active Substance: ETOPOSIDE
     Dosage: CONCENTRATION: 100MG/5ML;151 MG, QD; CYCLE 4
     Route: 042
     Dates: start: 20170405, end: 20170407
  43. LASTET [Suspect]
     Active Substance: ETOPOSIDE
     Dosage: CONCENTRATION: 100MG/5ML;151 MG, QD; CYCLE 6
     Route: 042
     Dates: start: 20170516, end: 20170517
  44. CISPLAN [Suspect]
     Active Substance: CISPLATIN
     Dosage: CONCENTRATION:50MG/100ML; 105 MG, ONCE; CYCLE 6
     Route: 042
     Dates: start: 20170516, end: 20170516
  45. SANCUSO [Concomitant]
     Active Substance: GRANISETRON
     Dosage: CONCENTRATION: 80.2X66.6MM2; 1 EA, QD
     Route: 062
     Dates: start: 20170404, end: 20170410
  46. CURAN [Concomitant]
     Active Substance: RANITIDINE HYDROCHLORIDE
     Dosage: CONCENTRATION: 50 MG/2ML; 50 MG, ONCE
     Route: 042
     Dates: start: 20170307, end: 20170307
  47. CURAN [Concomitant]
     Active Substance: RANITIDINE HYDROCHLORIDE
     Indication: PROPHYLAXIS OF NAUSEA AND VOMITING
     Dosage: 150 MG, BID
     Route: 048
     Dates: start: 20170125, end: 20170127
  48. LASIX [Concomitant]
     Active Substance: FUROSEMIDE
     Dosage: CONCENTRATION: 20MG/2ML;20 MG, ONCE
     Route: 042
     Dates: start: 20170516, end: 20170516
  49. LUTHIONE [Concomitant]
     Dosage: 1800 MG ONCE
     Route: 042
     Dates: start: 20170214, end: 20170214
  50. RELVAR ELLIPTA [Concomitant]
     Active Substance: FLUTICASONE FUROATE\VILANTEROL TRIFENATATE
     Indication: CHRONIC OBSTRUCTIVE PULMONARY DISEASE
     Dosage: 1 PUFF, QD
     Route: 055
     Dates: start: 201611
  51. DEXAMETHASONE. [Suspect]
     Active Substance: DEXAMETHASONE
     Dosage: 4 MG, BID
     Route: 048
     Dates: start: 20170215, end: 20170217
  52. LASTET [Suspect]
     Active Substance: ETOPOSIDE
     Dosage: CONCENTRATION: 100MG/5ML;158 MG, QD; CYCLE 2
     Route: 042
     Dates: start: 20170214, end: 20170216
  53. CISPLAN [Suspect]
     Active Substance: CISPLATIN
     Indication: SMALL CELL LUNG CANCER
     Dosage: CONCENTRATION:50MG/100ML; 112 MG, ONCE; CYCLE 1
     Route: 042
     Dates: start: 20170124, end: 20170124
  54. CURAN [Concomitant]
     Active Substance: RANITIDINE HYDROCHLORIDE
     Dosage: CONCENTRATION: 50 MG/2ML; 50 MG, ONCE
     Route: 042
     Dates: start: 20170405, end: 20170405
  55. CURAN [Concomitant]
     Active Substance: RANITIDINE HYDROCHLORIDE
     Dosage: CONCENTRATION: 50 MG/2ML; 50 MG, ONCE
     Route: 042
     Dates: start: 20170426, end: 20170426
  56. CURAN [Concomitant]
     Active Substance: RANITIDINE HYDROCHLORIDE
     Dosage: CONCENTRATION: 50 MG/2ML; 50 MG, ONCE
     Route: 042
     Dates: start: 20170516, end: 20170516
  57. CURAN [Concomitant]
     Active Substance: RANITIDINE HYDROCHLORIDE
     Dosage: 150 MG, BID
     Route: 048
     Dates: start: 20170308, end: 20170310
  58. CURAN [Concomitant]
     Active Substance: RANITIDINE HYDROCHLORIDE
     Dosage: 150 MG, BID
     Route: 048
     Dates: start: 20170427, end: 20170429
  59. LUTHIONE [Concomitant]
     Dosage: 1800 MG ONCE
     Route: 042
     Dates: start: 20170307, end: 20170307
  60. LUTHIONE [Concomitant]
     Dosage: 1800 MG ONCE
     Route: 042
     Dates: start: 20170516, end: 20170516
  61. LASTET [Suspect]
     Active Substance: ETOPOSIDE
     Dosage: CONCENTRATION: 100MG/5ML;151 MG, QD; CYCLE 3
     Route: 042
     Dates: start: 20170307, end: 20170309
  62. CISPLAN [Suspect]
     Active Substance: CISPLATIN
     Dosage: CONCENTRATION:50MG/100ML; 104 MG, ONCE; CYCLE 5
     Route: 042
     Dates: start: 20170426, end: 20170426
  63. SANCUSO [Concomitant]
     Active Substance: GRANISETRON
     Dosage: CONCENTRATION: 80.2X66.6MM2; 1 EA, QD
     Route: 062
     Dates: start: 20170306, end: 20170312
  64. LASIX [Concomitant]
     Active Substance: FUROSEMIDE
     Dosage: CONCENTRATION: 20MG/2ML;20 MG, ONCE
     Route: 042
     Dates: start: 20170426, end: 20170426
  65. LUTHIONE [Concomitant]
     Indication: PROPHYLAXIS
     Dosage: 1800 MG ONCE
     Route: 042
     Dates: start: 20170124, end: 20170124

REACTIONS (10)
  - Neutropenia [Recovered/Resolved]
  - Hiccups [Recovered/Resolved]
  - Oesophageal candidiasis [Recovered/Resolved]
  - Nausea [Recovered/Resolved]
  - Dyspepsia [Recovered/Resolved]
  - Pneumonia [Recovered/Resolved]
  - Gastrooesophageal reflux disease [Not Recovered/Not Resolved]
  - Constipation [Recovered/Resolved]
  - Anxiety [Recovered/Resolved]
  - Nausea [Recovered/Resolved]

NARRATIVE: CASE EVENT DATE: 20170203
